FAERS Safety Report 5468259-X (Version None)
Quarter: 2007Q3

REPORT INFORMATION
  Report Type: 
  Country: None (occurrence: None)
  Receive Date: 20070926
  Receipt Date: 20070918
  Transmission Date: 20080115
  Serious: Yes (Hospitalization)
  Sender: FDA-Public Use
  Company Number: DK-AVENTIS-200715841GDDC

PATIENT
  Sex: Male

DRUGS (7)
  1. LANTUS [Suspect]
     Route: 058
     Dates: start: 20070118
  2. ZARATOR                            /01326101/ [Concomitant]
     Route: 048
     Dates: start: 20040101
  3. PLAVIX [Concomitant]
     Route: 048
     Dates: start: 20070101
  4. MAGNYL [Concomitant]
     Route: 048
  5. IMDUR [Concomitant]
     Route: 048
  6. SELOZOK [Concomitant]
     Route: 048
  7. AMLODIPINE [Concomitant]
     Route: 048

REACTIONS (2)
  - PHARMACEUTICAL PRODUCT COMPLAINT [None]
  - SHOCK HYPOGLYCAEMIC [None]
